FAERS Safety Report 7634223-5 (Version None)
Quarter: 2011Q3

REPORT INFORMATION
  Report Type: 
  Country: None (occurrence: None)
  Receive Date: 20110725
  Receipt Date: 20110627
  Transmission Date: 20111222
  Serious: No
  Sender: FDA-Public Use
  Company Number: US-MYLANLABS-2011S1013474

PATIENT
  Age: 70 Year
  Sex: Male

DRUGS (5)
  1. HYDROCHLOROTHIAZIDE [Concomitant]
     Dates: start: 20110601
  2. METOPROLOL TARTRATE [Concomitant]
     Dates: start: 20110601
  3. CLONIDINE [Suspect]
     Indication: BLOOD PRESSURE INCREASED
     Dosage: Q.W.
     Route: 062
     Dates: start: 20110201
  4. CARVEDILOL [Concomitant]
     Dates: start: 20110301
  5. LISINOPRIL [Concomitant]
     Dates: start: 20110601

REACTIONS (2)
  - DRUG EFFECT DECREASED [None]
  - BLOOD PRESSURE INCREASED [None]
